FAERS Safety Report 5323914-7 (Version None)
Quarter: 2007Q2

REPORT INFORMATION
  Report Type: 
  Country: None (occurrence: None)
  Receive Date: 20070514
  Receipt Date: 20070509
  Transmission Date: 20071010
  Serious: Yes (Death)
  Sender: FDA-Public Use
  Company Number: KR-SANOFI-SYNTHELABO-F01200700497

PATIENT
  Sex: Male
  Weight: 47.4 kg

DRUGS (5)
  1. LEUCOGEN [Concomitant]
     Indication: LEUKOPENIA
     Dosage: 250 MCG SUBCUTANEOUS
     Route: 058
     Dates: start: 20070403, end: 20070403
  2. AUGMEX DUO [Concomitant]
     Dosage: 2 TABLESPOONS
     Route: 048
     Dates: start: 20070403, end: 20070405
  3. DOCETAXEL [Suspect]
     Indication: GASTRIC CANCER
     Dosage: ADMINISTERED ON DAY 1 OF A 21 DAY CYCLE
     Route: 042
     Dates: start: 20070323, end: 20070323
  4. DOCETAXEL [Suspect]
     Dosage: ADMINISTERED ON DAY 8 OF A 21 DAY CYCLE
     Route: 042
     Dates: start: 20070330, end: 20070330
  5. ELOXATIN [Suspect]
     Indication: GASTRIC CANCER
     Route: 042
     Dates: start: 20070323, end: 20070323

REACTIONS (1)
  - POSTOPERATIVE WOUND INFECTION [None]
